FAERS Safety Report 17336985 (Version 2)
Quarter: 2020Q1

REPORT INFORMATION
  Report Type: Spontaneous
  Country: BR (occurrence: BR)
  Receive Date: 20200129
  Receipt Date: 20200305
  Transmission Date: 20200409
  Serious: Yes (Hospitalization)
  Sender: FDA-Public Use
  Company Number: BR-AMGEN-BRASP2017056049

PATIENT
  Age: 14 Year
  Sex: Female
  Weight: 50 kg

DRUGS (4)
  1. ENBREL [Suspect]
     Active Substance: ETANERCEPT
     Indication: JUVENILE IDIOPATHIC ARTHRITIS
     Dosage: 25 MG, WEEKLY
     Route: 058
     Dates: start: 2010
  2. ENBREL [Suspect]
     Active Substance: ETANERCEPT
     Dosage: 50 MG, WEEKLY
     Route: 058
     Dates: start: 2011
  3. ENBREL [Suspect]
     Active Substance: ETANERCEPT
     Dosage: 50 MG, EVERY 15 DAYS
     Route: 065
     Dates: start: 2019
  4. ENBREL [Suspect]
     Active Substance: ETANERCEPT
     Dosage: 50 MILLIGRAM, QWK
     Route: 065

REACTIONS (6)
  - Pyrexia [Recovered/Resolved]
  - Product use in unapproved indication [Unknown]
  - Off label use [Unknown]
  - Infection [Recovered/Resolved]
  - Injection site pain [Unknown]
  - Musculoskeletal pain [Recovered/Resolved]

NARRATIVE: CASE EVENT DATE: 2010
